FAERS Safety Report 6470504-9 (Version None)
Quarter: 2009Q4

REPORT INFORMATION
  Report Type: 
  Country: None (occurrence: None)
  Receive Date: 20091202
  Receipt Date: 20091202
  Transmission Date: 20100525
  Serious: Yes (Disabling)
  Sender: FDA-Public Use
  Company Number: None

PATIENT
  Sex: Male
  Weight: 68.9467 kg

DRUGS (1)
  1. HCTZ / VALSARTAN 12.5MG/ 80MG NOVARTIS [Suspect]
     Indication: HYPERTENSION
     Dosage: 2 TABLETS EVERY MORNING PO
     Route: 048
     Dates: start: 20081212, end: 20091201

REACTIONS (1)
  - ANGIOEDEMA [None]
